FAERS Safety Report 13632761 (Version 1)
Quarter: 2017Q2

REPORT INFORMATION
  Report Type: Spontaneous
  Country: US (occurrence: US)
  Receive Date: 20170531
  Receipt Date: 20170531
  Transmission Date: 20170830
  Serious: No
  Sender: FDA-Public Use
  Company Number: US-ASTELLAS-1478185

PATIENT
  Sex: Male

DRUGS (14)
  1. ZONISAMIDE. [Concomitant]
     Active Substance: ZONISAMIDE
  2. KEPPRA [Concomitant]
     Active Substance: LEVETIRACETAM
  3. B-COMPLEX PLUS [Concomitant]
  4. IBUPROFEN. [Concomitant]
     Active Substance: IBUPROFEN
  5. NOVOLOG [Concomitant]
     Active Substance: INSULIN ASPART
  6. CLINDAMAX [Concomitant]
     Active Substance: CLINDAMYCIN PHOSPHATE
  7. XANAX [Concomitant]
     Active Substance: ALPRAZOLAM
  8. OMEPRAZOLE. [Concomitant]
     Active Substance: OMEPRAZOLE
  9. VITAMIN D3 [Concomitant]
     Active Substance: CHOLECALCIFEROL
  10. TARCEVA [Suspect]
     Active Substance: ERLOTINIB HYDROCHLORIDE
     Indication: LUNG NEOPLASM MALIGNANT
     Route: 048
     Dates: start: 20141006
  11. PERCOCET [Concomitant]
     Active Substance: ACETAMINOPHEN\OXYCODONE HYDROCHLORIDE
  12. LANTUS [Concomitant]
     Active Substance: INSULIN GLARGINE
  13. FOLIC ACID. [Concomitant]
     Active Substance: FOLIC ACID
  14. HYDROCORTISONE. [Concomitant]
     Active Substance: HYDROCORTISONE

REACTIONS (2)
  - Disease progression [Unknown]
  - Rash [Unknown]
